FAERS Safety Report 12904373 (Version 1)
Quarter: 2016Q4

REPORT INFORMATION
  Report Type: Spontaneous
  Country: US (occurrence: US)
  Receive Date: 20161102
  Receipt Date: 20161102
  Transmission Date: 20170207
  Serious: Yes (Other)
  Sender: FDA-Public Use
  Company Number: PHEH2016US027878

PATIENT
  Age: 56 Year
  Sex: Male

DRUGS (3)
  1. HUMIRA [Suspect]
     Active Substance: ADALIMUMAB
     Indication: CROHN^S DISEASE
     Dosage: 1 DF, BID
     Route: 058
     Dates: start: 20151113
  2. RECLAST [Suspect]
     Active Substance: ZOLEDRONIC ACID
     Indication: OSTEOMALACIA
     Dosage: UNK
     Route: 065
     Dates: start: 2016
  3. IMURAN [Concomitant]
     Active Substance: AZATHIOPRINE
     Indication: PRODUCT USED FOR UNKNOWN INDICATION
     Dosage: UNK
     Route: 065

REACTIONS (8)
  - Osteoporosis [Unknown]
  - Osteomalacia [Not Recovered/Not Resolved]
  - Iron deficiency [Unknown]
  - Arthralgia [Unknown]
  - Blood calcium decreased [Unknown]
  - Vitamin C deficiency [Unknown]
  - Bone pain [Unknown]
  - Vitamin D deficiency [Unknown]

NARRATIVE: CASE EVENT DATE: 20160201
